FAERS Safety Report 19928734 (Version 1)
Quarter: 2021Q4

REPORT INFORMATION
  Report Type: Spontaneous
  Country: GB (occurrence: GB)
  Receive Date: 20211007
  Receipt Date: 20211007
  Transmission Date: 20220303
  Serious: Yes (Death)
  Sender: FDA-Public Use
  Company Number: None

PATIENT
  Age: 28 Year
  Sex: Female
  Weight: 85 kg

DRUGS (1)
  1. QUETIAPINE FUMARATE [Suspect]
     Active Substance: QUETIAPINE FUMARATE
     Indication: Neuropsychiatric symptoms
     Dosage: UNKNOWN TO ME, POSSIBLY OVERDOSE
     Route: 048
     Dates: start: 20210904, end: 20210904

REACTIONS (1)
  - Death [Fatal]

NARRATIVE: CASE EVENT DATE: 20210904
